FAERS Safety Report 23389065 (Version 2)
Quarter: 2024Q1

REPORT INFORMATION
  Report Type: Spontaneous
  Country: US (occurrence: US)
  Receive Date: 20240110
  Receipt Date: 20240117
  Transmission Date: 20240409
  Serious: No
  Sender: FDA-Public Use
  Company Number: US-PFIZER INC-PV202300003433

PATIENT
  Age: 73 Year
  Sex: Male

DRUGS (3)
  1. TIKOSYN [Suspect]
     Active Substance: DOFETILIDE
     Indication: Arrhythmia
     Dosage: 0.125 MG (1X60 BTL US)
  2. TIKOSYN [Suspect]
     Active Substance: DOFETILIDE
     Dosage: 0.125 UG
  3. TIKOSYN [Suspect]
     Active Substance: DOFETILIDE
     Dosage: 0.125 MG (1X60 BTL US)

REACTIONS (3)
  - Product prescribing error [Unknown]
  - Product dispensing error [Unknown]
  - Memory impairment [Unknown]
